FAERS Safety Report 13074726 (Version 2)
Quarter: 2018Q1

REPORT INFORMATION
  Report Type: Spontaneous
  Country: US (occurrence: US)
  Receive Date: 20161230
  Receipt Date: 20180122
  Transmission Date: 20180508
  Serious: No
  Sender: FDA-Public Use
  Company Number: US-TEVA-701706USA

PATIENT
  Age: 79 Year
  Sex: Female
  Weight: 58.57 kg

DRUGS (14)
  1. TRAZODONE [Suspect]
     Active Substance: TRAZODONE HYDROCHLORIDE
     Indication: DEPRESSION
  2. TIZANIDINE. [Concomitant]
     Active Substance: TIZANIDINE
  3. LEVOTHYROXINE. [Concomitant]
     Active Substance: LEVOTHYROXINE
  4. ZOLPIDEM [Concomitant]
     Active Substance: ZOLPIDEM\ZOLPIDEM TARTRATE
  5. LOSARTAN. [Concomitant]
     Active Substance: LOSARTAN
  6. ALEVE [Concomitant]
     Active Substance: NAPROXEN SODIUM
  7. TRAZODONE [Suspect]
     Active Substance: TRAZODONE HYDROCHLORIDE
     Indication: SLEEP DISORDER
     Dates: start: 20160909, end: 20160909
  8. PRAVASTATIN. [Concomitant]
     Active Substance: PRAVASTATIN
  9. CLONIDINE. [Concomitant]
     Active Substance: CLONIDINE
  10. LOVASTATIN. [Concomitant]
     Active Substance: LOVASTATIN
  11. CRESTOR [Concomitant]
     Active Substance: ROSUVASTATIN CALCIUM
  12. LIPITOR [Concomitant]
     Active Substance: ATORVASTATIN CALCIUM
  13. AMLODIPINE [Concomitant]
     Active Substance: AMLODIPINE BESYLATE
  14. HCTZ [Concomitant]
     Active Substance: HYDROCHLOROTHIAZIDE

REACTIONS (9)
  - Nasal congestion [Unknown]
  - Dyspnoea [Recovered/Resolved]
  - Insomnia [Unknown]
  - Pain [Recovered/Resolved]
  - Balance disorder [Unknown]
  - Feeling abnormal [Unknown]
  - Candida infection [Recovered/Resolved]
  - Lethargy [Unknown]
  - Dizziness [Recovered/Resolved]

NARRATIVE: CASE EVENT DATE: 20160910
